FAERS Safety Report 9196705 (Version 2)
Quarter: 2013Q2

REPORT INFORMATION
  Report Type: Spontaneous
  Country: US (occurrence: US)
  Receive Date: 20130328
  Receipt Date: 20130506
  Transmission Date: 20140414
  Serious: Yes (Hospitalization)
  Sender: FDA-Public Use
  Company Number: US-JNJFOC-20130312085

PATIENT
  Age: 94 Year
  Sex: Female
  Weight: 76.2 kg

DRUGS (4)
  1. XARELTO [Suspect]
     Indication: CEREBROVASCULAR ACCIDENT PROPHYLAXIS
     Route: 048
  2. XARELTO [Suspect]
     Indication: ATRIAL FIBRILLATION
     Route: 048
  3. LEVOTHYROXINE [Concomitant]
     Route: 048
  4. LASIX [Concomitant]
     Route: 065

REACTIONS (6)
  - Haematochezia [Recovering/Resolving]
  - International normalised ratio increased [Recovering/Resolving]
  - Dyspnoea [Recovering/Resolving]
  - Asthenia [Recovering/Resolving]
  - Anaemia [Recovering/Resolving]
  - Blood creatinine increased [Recovering/Resolving]
